FAERS Safety Report 9364103 (Version 1)
Quarter: 2013Q2

REPORT INFORMATION
  Report Type: Spontaneous
  Country: SE (occurrence: None)
  Receive Date: 20130618
  Receipt Date: 20130618
  Transmission Date: 20140414
  Serious: Yes (Hospitalization)
  Sender: FDA-Public Use
  Company Number: SYM-2013-04719

PATIENT
  Age: 39 Year
  Sex: Female

DRUGS (8)
  1. VOXRA [Suspect]
     Indication: PRODUCT USED FOR UNKNOWN INDICATION
     Route: 048
     Dates: start: 201205
  2. FLUOXETIN [Suspect]
     Route: 048
     Dates: start: 2003
  3. STILNOCT(ZOLPIDEM TARTRATE)(ZOLPIDEM TARTRATE) [Concomitant]
  4. STESOLID(DIAZEPAM)(DIAZEPAM) [Concomitant]
  5. LEVAXIN(LEVOTHYROXINE SODIUM)(LEVOTHYROXINE SODIUM) [Concomitant]
  6. ALVEDON(PARACETAMOL)(PARACETAMOL) [Concomitant]
  7. IMOVANE(ZOPICLONE)(ZOPICLONE) [Concomitant]
  8. LITHIONIT(LITHIUM SULFATE)(LITHIUM SULFATE) [Concomitant]

REACTIONS (3)
  - Loss of consciousness [None]
  - Fall [None]
  - Grand mal convulsion [None]
